FAERS Safety Report 17810621 (Version 1)
Quarter: 2020Q2

REPORT INFORMATION
  Report Type: Spontaneous
  Country: US (occurrence: US)
  Receive Date: 20200521
  Receipt Date: 20200521
  Transmission Date: 20200714
  Serious: No
  Sender: FDA-Public Use
  Company Number: US-JNJFOC-20200427212

PATIENT
  Age: 39 Year
  Sex: Female
  Weight: 61.74 kg

DRUGS (1)
  1. WOMENS ROGAINE UNSCENTED [Suspect]
     Active Substance: MINOXIDIL
     Indication: ALOPECIA
     Dosage: CAPFUL
     Route: 061
     Dates: start: 20200417

REACTIONS (4)
  - Application site hypersensitivity [Not Recovered/Not Resolved]
  - Overdose [Unknown]
  - Application site irritation [Recovered/Resolved]
  - Application site pain [Recovered/Resolved]

NARRATIVE: CASE EVENT DATE: 202004
